FAERS Safety Report 6566697-5 (Version None)
Quarter: 2010Q1

REPORT INFORMATION
  Report Type: 
  Country: None (occurrence: None)
  Receive Date: 20100202
  Receipt Date: 20100122
  Transmission Date: 20100710
  Serious: Yes (Other)
  Sender: FDA-Public Use
  Company Number: US-JNJFOC-20091200571

PATIENT
  Sex: Female
  Weight: 85.28 kg

DRUGS (3)
  1. REMICADE [Suspect]
     Indication: CROHN'S DISEASE
     Dosage: FOR 2 YEARS
     Route: 042
     Dates: start: 20071101, end: 20091201
  2. REMICADE [Suspect]
     Route: 042
     Dates: start: 20071101, end: 20091201
  3. PROZAC [Concomitant]
     Indication: ANXIETY

REACTIONS (7)
  - DEAFNESS UNILATERAL [None]
  - DIZZINESS [None]
  - LOWER RESPIRATORY TRACT INFECTION [None]
  - NASOPHARYNGITIS [None]
  - NAUSEA [None]
  - OROPHARYNGEAL PAIN [None]
  - VOMITING [None]
